FAERS Safety Report 8507428-9 (Version None)
Quarter: 2012Q3

REPORT INFORMATION
  Report Type: 
  Country: None (occurrence: None)
  Receive Date: 20120712
  Receipt Date: 20120622
  Transmission Date: 20120928
  Serious: Yes (Hospitalization, Other)
  Sender: FDA-Public Use
  Company Number: BR-MSD-1206BRA00073

PATIENT

DRUGS (20)
  1. PROPRANOLOL HCL [Concomitant]
     Dosage: 20 MG, Q12H
     Route: 048
  2. MK-9378 [Concomitant]
     Dosage: UNK UNK, TID
  3. RIBAVIRIN [Concomitant]
     Indication: HEPATITIS C
     Dosage: UNK UNK, QID
     Dates: start: 20050101, end: 20060101
  4. RIBAVIRIN [Concomitant]
     Dosage: UNK UNK, QID
     Dates: start: 20080101, end: 20080101
  5. PEG-INTRON [Concomitant]
     Dates: start: 20120405
  6. PANTOPRAZOLE [Concomitant]
     Dosage: 40 MG, UNK
     Route: 048
  7. CLONIDINE HYDROCHLORIDE [Concomitant]
     Dosage: 40 MG, UNK
     Route: 048
  8. PROPRANOLOL HCL [Concomitant]
     Dosage: 80 MG, UNK
     Route: 048
  9. INSULIN HUMAN [Concomitant]
  10. INTERFERON (UNSPECIFIED) [Concomitant]
     Indication: HEPATITIS C
     Dates: start: 20050101, end: 20060101
  11. LANTUS [Concomitant]
     Dosage: 14 IU, UNK
  12. SAXAGLIPTIN [Concomitant]
     Dosage: 5 MG, UNK
  13. RIBAVIRIN [Concomitant]
     Dosage: 1500 MG, QD
     Dates: start: 20120202
  14. PEG-INTRON [Concomitant]
     Indication: HEPATITIS C
     Dates: start: 20080101, end: 20080101
  15. APIDRA [Concomitant]
     Dosage: UNK IU, UNK
  16. PEGINTERFERON ALFA-2A [Concomitant]
     Indication: HEPATITIS C
     Dosage: 180 A?G, QW
     Dates: start: 20120209, end: 20120405
  17. BOCEPREVIR [Concomitant]
     Indication: CHRONIC HEPATITIS
     Dates: start: 20120308, end: 20120614
  18. HYDROCHLOROTHIAZIDE (+) LOSARTAN POTASSIUM [Concomitant]
     Dosage: 40 MG, UNK
     Route: 048
  19. ZETIA [Suspect]
     Dosage: 40 MG, QD
     Route: 048
  20. LOSARTAN POTASSIUM [Suspect]
     Dosage: UNK UNK, QD
     Route: 048

REACTIONS (13)
  - ALANINE AMINOTRANSFERASE INCREASED [None]
  - ALPHA 1 FOETOPROTEIN INCREASED [None]
  - BLOOD BILIRUBIN UNCONJUGATED INCREASED [None]
  - PLATELET COUNT DECREASED [None]
  - BLOOD BILIRUBIN INCREASED [None]
  - BILIRUBIN CONJUGATED INCREASED [None]
  - FEBRILE NEUTROPENIA [None]
  - FUNGAEMIA [None]
  - HAEMATOCRIT DECREASED [None]
  - ASTHENIA [None]
  - HAEMOGLOBIN DECREASED [None]
  - BLOOD UREA INCREASED [None]
  - ASPARTATE AMINOTRANSFERASE INCREASED [None]
